FAERS Safety Report 7578627-8 (Version None)
Quarter: 2011Q2

REPORT INFORMATION
  Report Type: 
  Country: None (occurrence: None)
  Receive Date: 20110628
  Receipt Date: 20110615
  Transmission Date: 20111010
  Serious: No
  Sender: FDA-Public Use
  Company Number: PHHY2011JP51317

PATIENT
  Age: 62 Year
  Sex: Female

DRUGS (3)
  1. MUCOSOLVAN [Concomitant]
     Route: 048
  2. TEGRETOL [Suspect]
     Indication: SPINOCEREBELLAR DISORDER
     Route: 048
  3. BISOLVON [Interacting]
     Dosage: UNK
     Route: 048
     Dates: start: 20110530

REACTIONS (3)
  - DRUG LEVEL DECREASED [None]
  - EPILEPSY [None]
  - DRUG INTERACTION [None]
